FAERS Safety Report 9547360 (Version 3)
Quarter: 2013Q4

REPORT INFORMATION
  Report Type: Spontaneous
  Country: US (occurrence: None)
  Receive Date: 20130920
  Receipt Date: 20131028
  Transmission Date: 20140711
  Serious: Yes (Hospitalization)
  Sender: FDA-Public Use
  Company Number: 2013US002468

PATIENT
  Age: 51 Year
  Sex: Female
  Weight: 93 kg

DRUGS (1)
  1. ICLUSIG [Suspect]
     Indication: CHRONIC MYELOID LEUKAEMIA
     Route: 048
     Dates: start: 201302, end: 20130402

REACTIONS (9)
  - Basedow^s disease [None]
  - Contusion [None]
  - Cellulitis [None]
  - Platelet count decreased [None]
  - Haemorrhage [None]
  - Pyrexia [None]
  - Fatigue [None]
  - Anaemia [None]
  - Drug ineffective [None]
